FAERS Safety Report 8046336-7 (Version None)
Quarter: 2012Q1

REPORT INFORMATION
  Report Type: 
  Country: None (occurrence: None)
  Receive Date: 20120113
  Receipt Date: 20120111
  Transmission Date: 20120608
  Serious: Yes (Other)
  Sender: FDA-Public Use
  Company Number: FR-ROCHE-1029714

PATIENT
  Sex: Female

DRUGS (2)
  1. XELODA [Suspect]
     Indication: BREAST CANCER
     Route: 048
     Dates: start: 20110317, end: 20111116
  2. LAPATINIB [Concomitant]
     Indication: BREAST CANCER
     Route: 048
     Dates: start: 20110317

REACTIONS (3)
  - HAEMOLYSIS [None]
  - FATIGUE [None]
  - JAUNDICE [None]
